FAERS Safety Report 17229552 (Version 1)
Quarter: 2020Q1

REPORT INFORMATION
  Report Type: Spontaneous
  Country: JP (occurrence: JP)
  Receive Date: 20200103
  Receipt Date: 20200103
  Transmission Date: 20200409
  Serious: Yes (Other)
  Sender: FDA-Public Use
  Company Number: JP-TEVA-2019-JP-1162849

PATIENT
  Age: 8 Decade
  Sex: Female

DRUGS (2)
  1. PREDNISOLONE. [Suspect]
     Active Substance: PREDNISOLONE
     Indication: MICROSCOPIC POLYANGIITIS
     Dosage: INITIAL DOSAGE NOT STATED
     Route: 065
  2. PREDNISOLONE. [Suspect]
     Active Substance: PREDNISOLONE
     Indication: MALNUTRITION-INFLAMMATION-ATHEROSCLEROSIS SYNDROME
     Route: 065

REACTIONS (2)
  - White blood cell count increased [Unknown]
  - C-reactive protein increased [Recovering/Resolving]
